FAERS Safety Report 7790494-6 (Version None)
Quarter: 2011Q3

REPORT INFORMATION
  Report Type: 
  Country: None (occurrence: None)
  Receive Date: 20110930
  Receipt Date: 20110920
  Transmission Date: 20111222
  Serious: Yes (Other)
  Sender: FDA-Public Use
  Company Number: PHHY2011MX84666

PATIENT
  Age: 56 Year
  Sex: Female

DRUGS (3)
  1. INSULIN [Concomitant]
     Dosage: UNK
  2. RASILEZ [Suspect]
     Indication: HYPERTENSION
     Dosage: 1 DF, UNK
     Dates: start: 20110501
  3. METFORMIN HCL [Concomitant]

REACTIONS (1)
  - BLINDNESS [None]
